FAERS Safety Report 4895985-3 (Version None)
Quarter: 2006Q1

REPORT INFORMATION
  Report Type: 
  Country: None (occurrence: None)
  Receive Date: 20060125
  Receipt Date: 20060110
  Transmission Date: 20060701
  Serious: Yes (Other)
  Sender: FDA-Public Use
  Company Number: 2006S1000233

PATIENT
  Age: 56 Year
  Sex: Male
  Weight: 80.7403 kg

DRUGS (3)
  1. FENTANYL TRANSDERMAL SYSTEM [Suspect]
     Indication: SPINAL FUSION SURGERY
     Dosage: 50 UG/HR; Q3D, TRANSDERMAL
     Route: 062
     Dates: start: 20051001
  2. PARACETAMOL/OXYCODONE HYDROCHLORIDE [Concomitant]
  3. OXYBUTYNIN HYDROCHLORIDE [Concomitant]

REACTIONS (3)
  - APPLICATION SITE BURN [None]
  - DRUG WITHDRAWAL SYNDROME [None]
  - PHARMACEUTICAL PRODUCT COMPLAINT [None]
